FAERS Safety Report 20086895 (Version 1)
Quarter: 2021Q4

REPORT INFORMATION
  Report Type: Spontaneous
  Country: RU (occurrence: RU)
  Receive Date: 20211118
  Receipt Date: 20211118
  Transmission Date: 20220303
  Serious: Yes (Other)
  Sender: FDA-Public Use
  Company Number: RU-BIOGEN-2021BI01068142

PATIENT
  Age: 43 Year
  Sex: Male
  Weight: 92 kg

DRUGS (2)
  1. TYSABRI [Suspect]
     Active Substance: NATALIZUMAB
     Indication: Multiple sclerosis
     Route: 042
     Dates: start: 20190723, end: 20191008
  2. Gizaar Forte [Concomitant]
     Indication: Hypertension
     Dosage: 100 + 12.5 MG
     Route: 048

REACTIONS (3)
  - Swelling face [Recovered/Resolved]
  - Parapsoriasis [Recovered/Resolved]
  - Hypoaesthesia [Recovered/Resolved]

NARRATIVE: CASE EVENT DATE: 20190801
